FAERS Safety Report 8053168-2 (Version None)
Quarter: 2012Q1

REPORT INFORMATION
  Report Type: 
  Country: None (occurrence: None)
  Receive Date: 20120118
  Receipt Date: 20120118
  Transmission Date: 20120608
  Serious: Yes (Hospitalization)
  Sender: FDA-Public Use
  Company Number: CN-ROCHE-1031180

PATIENT
  Age: 49 Year
  Sex: Female
  Weight: 79 kg

DRUGS (2)
  1. IRINOTECAN HYDROCHLORIDE [Suspect]
     Indication: GASTROINTESTINAL CARCINOMA
     Dates: start: 20111101
  2. XELODA [Suspect]
     Indication: GASTROINTESTINAL CARCINOMA
     Route: 048
     Dates: start: 20111101

REACTIONS (2)
  - ASPHYXIA [None]
  - VOMITING [None]
